FAERS Safety Report 6135597-7 (Version None)
Quarter: 2009Q1

REPORT INFORMATION
  Report Type: 
  Country: None (occurrence: None)
  Receive Date: 20090327
  Receipt Date: 20070116
  Transmission Date: 20090719
  Serious: Yes (Death, Other)
  Sender: FDA-Public Use
  Company Number: PHMT2006CA02138

PATIENT
  Sex: Female
  Weight: 54.421 kg

DRUGS (9)
  1. EXELON [Suspect]
     Indication: DEMENTIA ALZHEIMER'S TYPE
     Dosage: 6 MG, QD
     Route: 048
     Dates: start: 20060515
  2. LOPRESSOR [Suspect]
  3. PMS-METOPROLOL-L [Concomitant]
     Dosage: 25 MG, QD 1 TABLET TWO TIMES A DAY
     Route: 048
     Dates: start: 20060928
  4. NEXIUM [Concomitant]
     Dosage: 40 MG, QD
     Route: 048
     Dates: start: 20060928
  5. CARBAMAZEPINE [Concomitant]
     Dosage: 200 MG, 2 TABLETS QD PRN
     Route: 048
     Dates: start: 20060922
  6. ACTONEL [Concomitant]
     Dosage: 1 TABLET, ONCE WEEKLY
     Route: 048
     Dates: start: 20060926
  7. APO-CAL [Concomitant]
     Dosage: 500 MG,1 TABLET TWICE A DAY
     Route: 048
     Dates: start: 20060928
  8. VITAMIN D [Concomitant]
     Dosage: 400 IU, 1 CAPSULE TWICE A DAY
     Route: 048
     Dates: start: 20060928
  9. NOVASEN [Concomitant]
     Dosage: 325 MG, 1 TABLET ONCE A DAY
     Route: 048
     Dates: start: 20060928

REACTIONS (3)
  - CARDIAC ARREST [None]
  - SYNCOPE [None]
  - UPPER RESPIRATORY TRACT INFECTION [None]
